FAERS Safety Report 5089257-4 (Version None)
Quarter: 2006Q3

REPORT INFORMATION
  Report Type: 
  Country: None (occurrence: None)
  Receive Date: 20060825
  Receipt Date: 20060815
  Transmission Date: 20061208
  Serious: Yes (Other)
  Sender: FDA-Public Use
  Company Number: US-ABBOTT-06P-163-0340733-00

PATIENT
  Sex: Female

DRUGS (4)
  1. VICODIN [Suspect]
     Indication: MIGRAINE
     Route: 065
     Dates: start: 20060626
  2. VICODIN [Suspect]
     Dates: start: 20060626, end: 20060626
  3. ZOLPIDEM TARTRATE [Suspect]
     Indication: DRUG USE FOR UNKNOWN INDICATION
     Route: 048
     Dates: start: 20060201
  4. DILONTIN [Suspect]
     Indication: MIGRAINE
     Route: 065
     Dates: start: 20060626, end: 20060626

REACTIONS (4)
  - AMNESIA [None]
  - LOSS OF CONSCIOUSNESS [None]
  - OVERDOSE [None]
  - SUICIDE ATTEMPT [None]
